FAERS Safety Report 13229252 (Version 1)
Quarter: 2017Q1

REPORT INFORMATION
  Report Type: Spontaneous
  Country: US (occurrence: US)
  Receive Date: 20170214
  Receipt Date: 20170214
  Transmission Date: 20170428
  Serious: Yes (Other)
  Sender: FDA-Public Use
  Company Number: US-ENDO PHARMACEUTICALS INC-2016-006812

PATIENT
  Sex: Male

DRUGS (12)
  1. RISPERDAL CONSTA [Suspect]
     Active Substance: RISPERIDONE
     Indication: SCHIZOPHRENIA
  2. INVEGA [Suspect]
     Active Substance: PALIPERIDONE
     Indication: SCHIZOPHRENIA
  3. RISPERDAL [Suspect]
     Active Substance: RISPERIDONE
     Route: 065
  4. RISPERDAL CONSTA [Suspect]
     Active Substance: RISPERIDONE
     Route: 065
  5. RISPERDAL CONSTA [Suspect]
     Active Substance: RISPERIDONE
     Indication: BIPOLAR DISORDER
  6. RISPERIDONE TABLETS [Suspect]
     Active Substance: RISPERIDONE
     Indication: SCHIZOPHRENIA
  7. RISPERDAL [Suspect]
     Active Substance: RISPERIDONE
     Indication: BIPOLAR DISORDER
  8. RISPERDAL [Suspect]
     Active Substance: RISPERIDONE
     Indication: SCHIZOPHRENIA
  9. INVEGA [Suspect]
     Active Substance: PALIPERIDONE
     Route: 065
  10. RISPERIDONE TABLETS [Suspect]
     Active Substance: RISPERIDONE
     Route: 048
  11. RISPERIDONE TABLETS [Suspect]
     Active Substance: RISPERIDONE
     Indication: BIPOLAR DISORDER
  12. INVEGA [Suspect]
     Active Substance: PALIPERIDONE
     Indication: BIPOLAR DISORDER

REACTIONS (6)
  - Anxiety [Not Recovered/Not Resolved]
  - Pain [Not Recovered/Not Resolved]
  - Drug ineffective [Not Recovered/Not Resolved]
  - Quality of life decreased [Not Recovered/Not Resolved]
  - Gynaecomastia [Not Recovered/Not Resolved]
  - Anhedonia [None]
